FAERS Safety Report 15677619 (Version 4)
Quarter: 2020Q3

REPORT INFORMATION
  Report Type: Spontaneous
  Country: US (occurrence: US)
  Receive Date: 20181130
  Receipt Date: 20200709
  Transmission Date: 20201102
  Serious: No
  Sender: FDA-Public Use
  Company Number: US-PFIZER INC-2018491031

PATIENT
  Age: 69 Year
  Sex: Female

DRUGS (1)
  1. IBRANCE [Suspect]
     Active Substance: PALBOCICLIB
     Dosage: UNK

REACTIONS (6)
  - Blood iron decreased [Unknown]
  - Dyschromatopsia [Unknown]
  - Bronchitis [Unknown]
  - Muscle twitching [Unknown]
  - Vision blurred [Unknown]
  - Arthropathy [Unknown]
